FAERS Safety Report 7783557-2 (Version None)
Quarter: 2011Q3

REPORT INFORMATION
  Report Type: 
  Country: None (occurrence: None)
  Receive Date: 20110928
  Receipt Date: 20110809
  Transmission Date: 20111222
  Serious: No
  Sender: FDA-Public Use
  Company Number: US-MYLANLABS-2011S1012913

PATIENT
  Age: 72 Year
  Sex: Female

DRUGS (3)
  1. LETROZOLE [Suspect]
     Indication: BREAST CANCER
     Dates: start: 20110503, end: 20110604
  2. NEXIUM [Concomitant]
  3. VITAMIN TAB [Concomitant]

REACTIONS (12)
  - HAEMOGLOBIN DECREASED [None]
  - SWELLING [None]
  - DEPRESSION [None]
  - BONE PAIN [None]
  - DIZZINESS [None]
  - MENTAL IMPAIRMENT [None]
  - ARTHRALGIA [None]
  - FATIGUE [None]
  - PAIN [None]
  - VISION BLURRED [None]
  - ASTHENIA [None]
  - HEADACHE [None]
